FAERS Safety Report 24038876 (Version 1)
Quarter: 2024Q3

REPORT INFORMATION
  Report Type: Spontaneous
  Country: ES (occurrence: ES)
  Receive Date: 20240702
  Receipt Date: 20240702
  Transmission Date: 20241017
  Serious: Yes (Hospitalization, Other)
  Sender: ALKEM
  Company Number: ES-ALKEM LABORATORIES LIMITED-ES-ALKEM-2024-13989

PATIENT
  Age: 69 Year
  Sex: Male

DRUGS (4)
  1. CAPECITABINE [Suspect]
     Active Substance: CAPECITABINE
     Indication: Adenocarcinoma of colon
     Dosage: 3800 MILLIGRAM, QD (1,000 MG/M2 /12 H DURING DAYS 1-14 EVERY 21 DAYS)
     Route: 065
  2. CAPECITABINE [Suspect]
     Active Substance: CAPECITABINE
     Dosage: 3000 MILLIGRAM, QD (ON DAYS 1-14 EVERY 21 DAYS)
     Route: 065
  3. CAPECITABINE [Suspect]
     Active Substance: CAPECITABINE
     Dosage: 4000 MILLIGRAM, QD (ON DAYS 1-14 EVERY 21 DAYS)
     Route: 065
  4. Oxali-platinum [Concomitant]
     Indication: Adenocarcinoma of colon
     Dosage: 247 MILLIGRAM, QD (130 MG/M2 /DAY)
     Route: 065

REACTIONS (2)
  - Pancreatitis acute [Recovered/Resolved]
  - Hypertriglyceridaemia [Unknown]
